FAERS Safety Report 8843685 (Version 1)
Quarter: 2012Q4

REPORT INFORMATION
  Report Type: 
  Country: US (occurrence: US)
  Receive Date: 20121016
  Receipt Date: 20121016
  Transmission Date: 20130627
  Serious: Yes (Other)
  Sender: FDA-Public Use
  Company Number: US-ROCHE-1139036

PATIENT
  Sex: Male
  Weight: 34.5 kg

DRUGS (3)
  1. NUTROPIN AQ [Suspect]
     Indication: DWARFISM
     Route: 058
     Dates: start: 19990617
  2. NUTROPIN AQ [Suspect]
     Indication: GROWTH HORMONE DEFICIENCY
  3. SYNTHROID [Concomitant]
     Route: 065

REACTIONS (1)
  - Thyroid neoplasm [Unknown]
